FAERS Safety Report 17675355 (Version 1)
Quarter: 2020Q2

REPORT INFORMATION
  Report Type: Spontaneous
  Country: SE (occurrence: SE)
  Receive Date: 20200416
  Receipt Date: 20200416
  Transmission Date: 20200714
  Serious: Yes (Other)
  Sender: FDA-Public Use
  Company Number: SE-TEVA-2020-SE-1223618

PATIENT
  Age: 72 Year
  Sex: Male

DRUGS (7)
  1. INSUMAN BASAL [Concomitant]
     Active Substance: INSULIN HUMAN
  2. ESOMEPRAZOL [Concomitant]
     Active Substance: ESOMEPRAZOLE
  3. SIMVASTATIN. [Concomitant]
     Active Substance: SIMVASTATIN
  4. LOSARTAN. [Concomitant]
     Active Substance: LOSARTAN
  5. PREDNISOLONE. [Suspect]
     Active Substance: PREDNISOLONE
     Indication: ACQUIRED HAEMOPHILIA
     Route: 048
     Dates: start: 20191017
  6. IMUREL [Concomitant]
     Active Substance: AZATHIOPRINE SODIUM
     Dates: start: 20200107
  7. METFORMIN [Concomitant]
     Active Substance: METFORMIN HYDROCHLORIDE

REACTIONS (1)
  - Substance-induced psychotic disorder [Unknown]

NARRATIVE: CASE EVENT DATE: 20200107
